FAERS Safety Report 19175124 (Version 2)
Quarter: 2021Q2

REPORT INFORMATION
  Report Type: Spontaneous
  Country: IN (occurrence: IN)
  Receive Date: 20210424
  Receipt Date: 20210507
  Transmission Date: 20210717
  Serious: Yes (Other)
  Sender: FDA-Public Use
  Company Number: IN-BAXTER-2021BAX008762

PATIENT
  Age: 33 Year
  Sex: Male

DRUGS (3)
  1. L?ASPARAGINASE [Suspect]
     Active Substance: ASPARAGINASE
     Indication: T-CELL TYPE ACUTE LEUKAEMIA
     Route: 065
     Dates: start: 2020
  2. VINCRISTINE [Suspect]
     Active Substance: VINCRISTINE
     Indication: T-CELL TYPE ACUTE LEUKAEMIA
     Route: 065
     Dates: start: 2020
  3. PREDNISOLONE. [Suspect]
     Active Substance: PREDNISOLONE
     Indication: T-CELL TYPE ACUTE LEUKAEMIA
     Route: 065
     Dates: start: 2020

REACTIONS (2)
  - COVID-19 pneumonia [Recovered/Resolved]
  - Infection reactivation [Recovered/Resolved]

NARRATIVE: CASE EVENT DATE: 20201008
